FAERS Safety Report 23073827 (Version 1)
Quarter: 2023Q4

REPORT INFORMATION
  Report Type: Spontaneous
  Country: US (occurrence: US)
  Receive Date: 20231017
  Receipt Date: 20231017
  Transmission Date: 20240109
  Serious: Yes (Hospitalization, Other)
  Sender: FDA-Public Use
  Company Number: US-ALEMBIC PHARMACUETICALS LIMITED-2023SCAL000847

PATIENT

DRUGS (8)
  1. BUPROPION HYDROCHLORIDE [Suspect]
     Active Substance: BUPROPION HYDROCHLORIDE
     Indication: Major depression
     Dosage: 300 MILLIGRAM, QD
     Route: 065
     Dates: start: 20211229
  2. BUPROPION HYDROCHLORIDE [Suspect]
     Active Substance: BUPROPION HYDROCHLORIDE
     Indication: Depressed mood
     Dosage: 450 MILLIGRAM, FOR 35 DAYS
     Route: 065
     Dates: start: 20220301
  3. AMANTADINE HYDROCHLORIDE [Interacting]
     Active Substance: AMANTADINE HYDROCHLORIDE
     Indication: Post-traumatic headache
     Dosage: 100 MILLIGRAM, BID
     Route: 065
     Dates: start: 20220405
  4. DULOXETINE HYDROCHLORIDE [Interacting]
     Active Substance: DULOXETINE HYDROCHLORIDE
     Indication: Major depression
     Dosage: 40 MILLIGRAM, BID
     Route: 065
     Dates: start: 20211229
  5. DULOXETINE HYDROCHLORIDE [Interacting]
     Active Substance: DULOXETINE HYDROCHLORIDE
     Dosage: 40 MILLIGRAM, QD
     Route: 065
     Dates: start: 20211229
  6. GABAPENTIN [Suspect]
     Active Substance: GABAPENTIN
     Indication: Headache
     Dosage: 100 MILLIGRAM, TID
     Route: 065
     Dates: start: 20220112
  7. GABAPENTIN [Suspect]
     Active Substance: GABAPENTIN
     Dosage: 300 MILLIGRAM, TID, FOR 54 DAYS
     Route: 065
     Dates: start: 20220210
  8. GABAPENTIN [Suspect]
     Active Substance: GABAPENTIN
     Dosage: 200 MILLIGRAM, TID
     Route: 065

REACTIONS (5)
  - Serotonin syndrome [Recovered/Resolved]
  - Tremor [Recovered/Resolved]
  - Clonus [Recovered/Resolved]
  - Tachycardia [Recovered/Resolved]
  - Drug interaction [Unknown]

NARRATIVE: CASE EVENT DATE: 20220415
